FAERS Safety Report 5415478-4 (Version None)
Quarter: 2007Q3

REPORT INFORMATION
  Report Type: 
  Country: None (occurrence: None)
  Receive Date: 20070815
  Receipt Date: 20070803
  Transmission Date: 20080115
  Serious: Yes (Hospitalization)
  Sender: FDA-Public Use
  Company Number: BR-ROCHE-510715

PATIENT
  Age: 18 Year
  Sex: Male
  Weight: 63 kg

DRUGS (1)
  1. ISOTRETINOIN [Suspect]
     Indication: ACNE
     Dosage: STRENGTH 10-20 MG/CAPSULE. FREQUENCY: 10 MG IN THE MORNING AND 20 MG IN THE AFTERNOON.
     Route: 048
     Dates: start: 20070726, end: 20070731

REACTIONS (2)
  - PHARYNGITIS [None]
  - TONSILLITIS [None]
